FAERS Safety Report 20839998 (Version 2)
Quarter: 2022Q2

REPORT INFORMATION
  Report Type: Other
  Country: US (occurrence: None)
  Receive Date: 20220517
  Receipt Date: 20220615
  Transmission Date: 20220721
  Serious: No
  Sender: FDA-Public Use
  Company Number: US-ROCHE-3097344

PATIENT
  Sex: Male

DRUGS (1)
  1. OCREVUS [Suspect]
     Active Substance: OCRELIZUMAB
     Indication: Relapsing-remitting multiple sclerosis
     Dosage: PRESCRIBED AS 300 MG IV 2 WEEKS APART THAN 600 MG EVERY 6 MONTHS?DATE OF TREATMENT:  07/DEC/2021, 20
     Route: 042

REACTIONS (1)
  - COVID-19 [Unknown]
